FAERS Safety Report 4366726-3 (Version None)
Quarter: 2004Q2

REPORT INFORMATION
  Report Type: 
  Country: None (occurrence: None)
  Receive Date: 20040527
  Receipt Date: 20040520
  Transmission Date: 20050107
  Serious: Yes (Death, Hospitalization, Other)
  Sender: FDA-Public Use
  Company Number: IN-MERCK-0405USA01718

PATIENT
  Age: 13 Year
  Sex: Male

DRUGS (5)
  1. ASPARAGINASE (AS DRUG) [Suspect]
     Indication: ACUTE LYMPHOCYTIC LEUKAEMIA
     Route: 042
  2. DAUNORUBICIN HCL [Suspect]
     Indication: ACUTE LYMPHOCYTIC LEUKAEMIA
     Route: 065
  3. METHOTREXATE [Suspect]
     Indication: ACUTE LYMPHOCYTIC LEUKAEMIA
     Route: 042
  4. PREDNISOLONE [Suspect]
     Indication: ACUTE LYMPHOCYTIC LEUKAEMIA
     Route: 065
  5. VINCRISTINE SULFATE [Suspect]
     Indication: ACUTE LYMPHOCYTIC LEUKAEMIA
     Route: 065

REACTIONS (11)
  - BLOOD CULTURE POSITIVE [None]
  - BRAIN ABSCESS [None]
  - ESCHERICHIA INFECTION [None]
  - FEBRILE NEUTROPENIA [None]
  - GRAND MAL CONVULSION [None]
  - HAEMOPTYSIS [None]
  - HEMIPARESIS [None]
  - PSEUDOMONAS INFECTION [None]
  - PULMONARY EMBOLISM [None]
  - SINUS TACHYCARDIA [None]
  - TACHYPNOEA [None]
